FAERS Safety Report 4587435-1 (Version None)
Quarter: 2005Q1

REPORT INFORMATION
  Report Type: 
  Country: None (occurrence: None)
  Receive Date: 20050218
  Receipt Date: 20050211
  Transmission Date: 20050727
  Serious: Yes (Death)
  Sender: FDA-Public Use
  Company Number: AR-ABBOTT-05P-007-0290465-00

PATIENT

DRUGS (3)
  1. RITONAVIR [Suspect]
     Indication: HIV INFECTION
     Route: 048
  2. SAQUINAVIR [Suspect]
     Indication: HIV INFECTION
     Route: 048
  3. RIFAMPICIN [Suspect]
     Indication: TUBERCULOSIS
     Dosage: NOT REPORTED

REACTIONS (1)
  - PROGRESSIVE MULTIFOCAL LEUKOENCEPHALOPATHY [None]
